FAERS Safety Report 18272803 (Version 3)
Quarter: 2021Q4

REPORT INFORMATION
  Report Type: Spontaneous
  Country: US (occurrence: US)
  Receive Date: 20200916
  Receipt Date: 20211001
  Transmission Date: 20220303
  Serious: No
  Sender: FDA-Public Use
  Company Number: US-PFIZER INC-2020350018

PATIENT
  Age: 11 Year
  Sex: Female
  Weight: 45.36 kg

DRUGS (1)
  1. GENOTROPIN [Suspect]
     Active Substance: SOMATROPIN
     Indication: Blood growth hormone
     Dosage: UNK (1.5 6 TIMES A WEEK)

REACTIONS (4)
  - Device use issue [Unknown]
  - Expired device used [Unknown]
  - Drug dose omission by device [Not Recovered/Not Resolved]
  - Device information output issue [Unknown]
